FAERS Safety Report 5377095-4 (Version None)
Quarter: 2007Q2

REPORT INFORMATION
  Report Type: 
  Country: None (occurrence: None)
  Receive Date: 20070628
  Receipt Date: 20070628
  Transmission Date: 20071010
  Serious: Yes (Hospitalization)
  Sender: FDA-Public Use
  Company Number: None

PATIENT
  Age: 88 Year
  Sex: Male

DRUGS (1)
  1. NITROGLYCERIN [Suspect]
     Indication: PAIN
     Dosage: ONCE SUBLINGUAL
     Route: 060
     Dates: start: 20070518, end: 20070518

REACTIONS (3)
  - ACUTE CORONARY SYNDROME [None]
  - HYPOTENSION [None]
  - PRESYNCOPE [None]
